FAERS Safety Report 17111653 (Version 1)
Quarter: 2019Q4

REPORT INFORMATION
  Report Type: Spontaneous
  Country: FR (occurrence: FR)
  Receive Date: 20191204
  Receipt Date: 20191204
  Transmission Date: 20200122
  Serious: Yes (Hospitalization)
  Sender: FDA-Public Use
  Company Number: FR-MYLANLABS-2019M1117395

PATIENT
  Age: 56 Year
  Sex: Female
  Weight: 62 kg

DRUGS (1)
  1. PACLITAXEL. [Suspect]
     Active Substance: PACLITAXEL
     Indication: BREAST CANCER
     Dosage: 1 DOSAGE FORM, QW
     Route: 042
     Dates: start: 201903, end: 20190412

REACTIONS (1)
  - Lung disorder [Recovering/Resolving]

NARRATIVE: CASE EVENT DATE: 201904
